FAERS Safety Report 10762516 (Version 1)
Quarter: 2015Q1

REPORT INFORMATION
  Report Type: Report from Study
  Country: VE (occurrence: VE)
  Receive Date: 20150204
  Receipt Date: 20150204
  Transmission Date: 20150721
  Serious: Yes (Hospitalization)
  Sender: FDA-Public Use
  Company Number: PHHY2015VE011982

PATIENT
  Sex: Female

DRUGS (5)
  1. AFINITOR [Suspect]
     Active Substance: EVEROLIMUS
     Indication: NEUROENDOCRINE TUMOUR
     Dosage: 10 MG, QD
     Route: 048
     Dates: start: 201309
  2. SANDOSTATIN LAR DEPOT [Suspect]
     Active Substance: OCTREOTIDE ACETATE
     Indication: NEUROENDOCRINE TUMOUR
     Dosage: 20 MG, WEEKLY
     Route: 058
     Dates: start: 201309
  3. NEUPOGEN [Concomitant]
     Active Substance: FILGRASTIM
     Indication: BONE MARROW FAILURE
     Dosage: 5 MG, QW
     Route: 065
  4. EPREX [Concomitant]
     Active Substance: ERYTHROPOIETIN
     Indication: BONE MARROW FAILURE
     Dosage: UNK UKN, UNK, WEEKLY
  5. GRANOCYTE [Concomitant]
     Active Substance: LENOGRASTIM
     Indication: BONE MARROW FAILURE
     Dosage: UNK UKN, UNK, WEEKLY
     Route: 065

REACTIONS (10)
  - Weight decreased [Recovering/Resolving]
  - Dehydration [Recovering/Resolving]
  - Neoplasm [Unknown]
  - Abdominal pain [Recovering/Resolving]
  - Pain [Recovering/Resolving]
  - Diarrhoea [Recovering/Resolving]
  - Vomiting [Recovering/Resolving]
  - Product use issue [Unknown]
  - Inappropriate schedule of drug administration [Unknown]
  - Drug ineffective [Unknown]
